FAERS Safety Report 6786760-3 (Version None)
Quarter: 2010Q2

REPORT INFORMATION
  Report Type: 
  Country: None (occurrence: None)
  Receive Date: 20100623
  Receipt Date: 20100614
  Transmission Date: 20101027
  Serious: Yes (Hospitalization, Other)
  Sender: FDA-Public Use
  Company Number: US-ASTRAZENECA-2010SE27563

PATIENT
  Age: 58 Year
  Sex: Female
  Weight: 103.4 kg

DRUGS (6)
  1. SEROQUEL [Suspect]
     Indication: DEPRESSION
     Route: 048
     Dates: start: 20100501
  2. CHANTIX [Suspect]
     Indication: SMOKING CESSATION THERAPY
     Route: 048
     Dates: end: 20100501
  3. CHANTIX [Suspect]
     Route: 048
     Dates: start: 20100501
  4. PREDNISONE [Suspect]
     Indication: CHRONIC OBSTRUCTIVE PULMONARY DISEASE
     Dates: start: 20100101, end: 20100529
  5. PRILOSEC [Concomitant]
  6. LASIX [Concomitant]

REACTIONS (5)
  - BLOOD GLUCOSE INCREASED [None]
  - CHRONIC OBSTRUCTIVE PULMONARY DISEASE [None]
  - DEPRESSION [None]
  - PRODUCT LABEL ISSUE [None]
  - SKIN EXFOLIATION [None]
